FAERS Safety Report 13837589 (Version 1)
Quarter: 2017Q3

REPORT INFORMATION
  Report Type: Spontaneous
  Country: US (occurrence: US)
  Receive Date: 20170805
  Receipt Date: 20170805
  Transmission Date: 20171127
  Serious: Yes (Other)
  Sender: FDA-Public Use
  Company Number: US-ZYDUS-015921

PATIENT
  Age: 32 Year
  Sex: Male

DRUGS (1)
  1. AMIODARONE [Suspect]
     Active Substance: AMIODARONE
     Indication: VENTRICULAR TACHYARRHYTHMIA
     Route: 065
     Dates: start: 2008

REACTIONS (8)
  - Palpitations [Recovered/Resolved]
  - Hyperthyroidism [Recovered/Resolved]
  - Weight decreased [Recovered/Resolved]
  - Temperature intolerance [Recovered/Resolved]
  - Thyroiditis [Recovered/Resolved]
  - Insomnia [Recovered/Resolved]
  - Hypothyroidism [Recovered/Resolved]
  - Tachycardia [Recovered/Resolved]

NARRATIVE: CASE EVENT DATE: 201210
